FAERS Safety Report 24659263 (Version 1)
Quarter: 2024Q4

REPORT INFORMATION
  Report Type: Spontaneous
  Country: US (occurrence: None)
  Receive Date: 20241123
  Receipt Date: 20241123
  Transmission Date: 20250115
  Serious: Yes (Hospitalization)
  Sender: Public
  Company Number: None

PATIENT
  Age: 58 Year
  Sex: Female
  Weight: 83.25 kg

DRUGS (1)
  1. CLENPIQ [Suspect]
     Active Substance: ANHYDROUS CITRIC ACID\MAGNESIUM OXIDE\SODIUM PICOSULFATE
     Indication: Colonoscopy
     Dosage: OTHER QUANTITY : 2 BOTTLES;?FREQUENCY : TWICE A DAY;?
     Route: 048
     Dates: start: 20241119, end: 20241120

REACTIONS (4)
  - Pain [None]
  - Inflammation [None]
  - Abdominal pain [None]
  - Mucosal ulceration [None]

NARRATIVE: CASE EVENT DATE: 20241119
